FAERS Safety Report 15886299 (Version 1)
Quarter: 2019Q1

REPORT INFORMATION
  Report Type: Spontaneous
  Country: US (occurrence: US)
  Receive Date: 20190129
  Receipt Date: 20190129
  Transmission Date: 20190417
  Serious: No
  Sender: FDA-Public Use
  Company Number: US-US WORLDMEDS, LLC-USW201809-001415

PATIENT
  Sex: Female

DRUGS (5)
  1. CYTOMEL [Suspect]
     Active Substance: LIOTHYRONINE SODIUM
  2. TYROSINE [Concomitant]
     Active Substance: TYROSINE
     Dates: start: 201404
  3. HYDROCHLOROTHIAZIDE. [Concomitant]
     Active Substance: HYDROCHLOROTHIAZIDE
     Indication: BLOOD PRESSURE MEASUREMENT
  4. NADOLOL. [Suspect]
     Active Substance: NADOLOL
     Indication: MIGRAINE
  5. CYTOMEL [Suspect]
     Active Substance: LIOTHYRONINE SODIUM
     Indication: TRI-IODOTHYRONINE
     Dates: start: 201406

REACTIONS (2)
  - Malaise [Unknown]
  - Hypersensitivity [Unknown]
